FAERS Safety Report 9694311 (Version 3)
Quarter: 2015Q3

REPORT INFORMATION
  Report Type: Spontaneous
  Country: US (occurrence: US)
  Receive Date: 20131118
  Receipt Date: 20150803
  Transmission Date: 20151125
  Serious: No
  Sender: FDA-Public Use
  Company Number: US-GILEAD-2007-0013392

PATIENT
  Age: 54 Year
  Sex: Female
  Weight: 81.65 kg

DRUGS (10)
  1. LETAIRIS [Suspect]
     Active Substance: AMBRISENTAN
     Dates: start: 20070707
  2. ATIVAN [Concomitant]
     Active Substance: LORAZEPAM
     Indication: ANXIETY
     Route: 048
  3. REVATIO [Concomitant]
     Active Substance: SILDENAFIL CITRATE
     Indication: PULMONARY ARTERIAL HYPERTENSION
     Route: 048
  4. CALCIUM +D [Concomitant]
     Active Substance: CALCIUM\VITAMIN D
     Indication: VITAMIN SUPPLEMENTATION
     Route: 048
  5. LITHIUM. [Concomitant]
     Active Substance: LITHIUM
     Indication: BIPOLAR DISORDER
     Route: 048
  6. WELLBUTRIN [Concomitant]
     Active Substance: BUPROPION HYDROCHLORIDE
     Indication: DEPRESSION
     Route: 048
  7. LETAIRIS [Suspect]
     Active Substance: AMBRISENTAN
     Indication: PULMONARY ARTERIAL HYPERTENSION
     Route: 048
  8. VITAMIN B [Concomitant]
     Active Substance: VITAMIN B
     Indication: VITAMIN SUPPLEMENTATION
     Route: 048
  9. TYLENOL EXTRA STRENGTH [Concomitant]
     Active Substance: ACETAMINOPHEN
     Indication: PAIN
     Route: 048
  10. COUMADIN [Concomitant]
     Active Substance: WARFARIN SODIUM
     Indication: ANTICOAGULANT THERAPY
     Route: 048

REACTIONS (3)
  - Liver function test abnormal [Recovered/Resolved]
  - Muscle spasms [Not Recovered/Not Resolved]
  - Headache [Recovered/Resolved]

NARRATIVE: CASE EVENT DATE: 20070801
